FAERS Safety Report 8360250-9 (Version None)
Quarter: 2012Q1

REPORT INFORMATION
  Report Type: 
  Country: None (occurrence: None)
  Receive Date: 20120323
  Receipt Date: 20111123
  Transmission Date: 20120608
  Serious: Yes (Hospitalization)
  Sender: FDA-Public Use
  Company Number: 163-21880-11101265

PATIENT
  Age: 63 Year
  Sex: Male
  Weight: 94.3482 kg

DRUGS (12)
  1. ASPIRIN [Suspect]
     Indication: PRODUCT USED FOR UNKNOWN INDICATION
  2. PROTON PUMP INHIBITORS (PROTON PUMP INHIBITORS) (UNKNOWN) [Suspect]
     Indication: PRODUCT USED FOR UNKNOWN INDICATION
  3. PROTONIX [Concomitant]
  4. COUMADIN [Concomitant]
  5. PAIN PILLS (ANALGESICS) [Concomitant]
  6. REVLIMID [Suspect]
     Indication: MYELODYSPLASTIC SYNDROME
     Dosage: 10 MG, 1 IN 1 D, PO; 15 MG, 1 IN 1 D, PO; 10 MG, 1 IN 1 D, PO; 5 MG, 1 IN 1 D, PO; 10 MG, 1 IN 1 D,
     Route: 048
     Dates: start: 20101201
  7. REVLIMID [Suspect]
     Indication: MYELODYSPLASTIC SYNDROME
     Dosage: 10 MG, 1 IN 1 D, PO; 15 MG, 1 IN 1 D, PO; 10 MG, 1 IN 1 D, PO; 5 MG, 1 IN 1 D, PO; 10 MG, 1 IN 1 D,
     Route: 048
     Dates: start: 20111001
  8. REVLIMID [Suspect]
     Indication: MYELODYSPLASTIC SYNDROME
     Dosage: 10 MG, 1 IN 1 D, PO; 15 MG, 1 IN 1 D, PO; 10 MG, 1 IN 1 D, PO; 5 MG, 1 IN 1 D, PO; 10 MG, 1 IN 1 D,
     Route: 048
     Dates: start: 20110201
  9. REVLIMID [Suspect]
     Indication: MYELODYSPLASTIC SYNDROME
     Dosage: 10 MG, 1 IN 1 D, PO; 15 MG, 1 IN 1 D, PO; 10 MG, 1 IN 1 D, PO; 5 MG, 1 IN 1 D, PO; 10 MG, 1 IN 1 D,
     Route: 048
     Dates: start: 20110301
  10. REVLIMID [Suspect]
     Indication: MYELODYSPLASTIC SYNDROME
     Dosage: 10 MG, 1 IN 1 D, PO; 15 MG, 1 IN 1 D, PO; 10 MG, 1 IN 1 D, PO; 5 MG, 1 IN 1 D, PO; 10 MG, 1 IN 1 D,
     Route: 048
     Dates: start: 20110914
  11. HYDROXYUREA [Concomitant]
  12. LO-DOSE ASPIRIN (ACETYLSALICYLIC ACID) [Concomitant]

REACTIONS (2)
  - PLATELET COUNT INCREASED [None]
  - TRANSIENT ISCHAEMIC ATTACK [None]
